FAERS Safety Report 15121791 (Version 1)
Quarter: 2018Q3

REPORT INFORMATION
  Report Type: Spontaneous
  Country: DE (occurrence: DE)
  Receive Date: 20180709
  Receipt Date: 20180709
  Transmission Date: 20181010
  Serious: Yes (Life-Threatening, Other)
  Sender: FDA-Public Use
  Company Number: DE-JNJFOC-20180705367

PATIENT
  Age: 6 Decade
  Sex: Female

DRUGS (1)
  1. TREVICTA [Suspect]
     Active Substance: PALIPERIDONE PALMITATE
     Indication: PSYCHOTIC DISORDER
     Route: 030

REACTIONS (6)
  - Weight increased [Unknown]
  - Fear of death [Unknown]
  - Pain [Unknown]
  - Tongue paralysis [Unknown]
  - Asthenia [Unknown]
  - Peripheral swelling [Unknown]
